FAERS Safety Report 24468657 (Version 1)
Quarter: 2024Q4

REPORT INFORMATION
  Report Type: Spontaneous
  Country: DE (occurrence: DE)
  Receive Date: 20241018
  Receipt Date: 20241018
  Transmission Date: 20250114
  Serious: Yes (Death, Hospitalization, Other)
  Sender: GILEAD
  Company Number: DE-GILEAD-2024-0690565

PATIENT
  Age: 28 Year
  Sex: Female

DRUGS (1)
  1. TRODELVY [Suspect]
     Active Substance: SACITUZUMAB GOVITECAN-HZIY
     Indication: Triple negative breast cancer
     Dosage: 10 MG/KG BW D1 D8 Q3W
     Route: 065
     Dates: start: 202409

REACTIONS (2)
  - Disease progression [Fatal]
  - Dyspnoea [Fatal]
